FAERS Safety Report 7279592-3 (Version None)
Quarter: 2011Q1

REPORT INFORMATION
  Report Type: 
  Country: None (occurrence: None)
  Receive Date: 20110203
  Receipt Date: 20110203
  Transmission Date: 20110831
  Serious: Yes (Other)
  Sender: FDA-Public Use
  Company Number: None

PATIENT
  Sex: Female

DRUGS (2)
  1. ENBREL [Suspect]
     Indication: PSORIASIS
     Dosage: 50MG Q WEEK SQ
     Route: 058
  2. ENBREL [Suspect]
     Indication: RHEUMATOID ARTHRITIS
     Dosage: 50MG Q WEEK SQ
     Route: 058

REACTIONS (6)
  - RETINAL DISORDER [None]
  - PLATELET COUNT ABNORMAL [None]
  - THYROID NEOPLASM [None]
  - VISUAL FIELD DEFECT [None]
  - HAEMOGLOBIN ABNORMAL [None]
  - BREAST MASS [None]
